FAERS Safety Report 8833653 (Version 3)
Quarter: 2012Q4

REPORT INFORMATION
  Report Type: 
  Country: US (occurrence: US)
  Receive Date: 20121010
  Receipt Date: 20121211
  Transmission Date: 20130627
  Serious: Yes (Hospitalization)
  Sender: FDA-Public Use
  Company Number: US-VERTEX PHARMACEUTICAL INC.-2012-021873

PATIENT
  Age: 54 None
  Sex: Female
  Weight: 61 kg

DRUGS (6)
  1. INCIVEK [Suspect]
     Indication: HEPATITIS C
     Dosage: 750 mg, tid
     Route: 048
     Dates: start: 20120921, end: 20121130
  2. RIBAVIRIN [Suspect]
     Indication: HEPATITIS C
     Dosage: 400 mg, bid
     Route: 048
     Dates: start: 20120921, end: 20121126
  3. PEGASYS [Suspect]
     Indication: HEPATITIS C
     Dosage: 180 ?g, qw
     Route: 058
     Dates: start: 20120921
  4. ANTIHYPERTENSION MEDS [Concomitant]
     Indication: HYPERTENSION
  5. DIABETES MED [Concomitant]
     Indication: DIABETES MELLITUS
  6. PERCOCET                           /00446701/ [Concomitant]

REACTIONS (5)
  - Anaemia [Not Recovered/Not Resolved]
  - Influenza like illness [Recovered/Resolved]
  - Anxiety [Not Recovered/Not Resolved]
  - Arthralgia [Not Recovered/Not Resolved]
  - Rash papular [Recovered/Resolved]
